FAERS Safety Report 18248623 (Version 1)
Quarter: 2020Q3

REPORT INFORMATION
  Report Type: Report from Study
  Country: CA (occurrence: CA)
  Receive Date: 20200909
  Receipt Date: 20200909
  Transmission Date: 20201103
  Serious: Yes (Other)
  Sender: FDA-Public Use
  Company Number: CA-JNJFOC-20200843822

PATIENT
  Age: 43 Year
  Sex: Female

DRUGS (1)
  1. REMICADE [Suspect]
     Active Substance: INFLIXIMAB
     Indication: COLITIS ULCERATIVE
     Dosage: ADMINISTERED JULY 31 2020?LAST INFUSION ON 26?AUG?2020_  INFUSION NUMBER _103 _800 MG
     Route: 042
     Dates: start: 20101004

REACTIONS (8)
  - Nasopharyngitis [Unknown]
  - Dehydration [Unknown]
  - Headache [Not Recovered/Not Resolved]
  - Frequent bowel movements [Unknown]
  - Haematochezia [Unknown]
  - Immunosuppression [Unknown]
  - Sinus disorder [Unknown]
  - General physical health deterioration [Unknown]

NARRATIVE: CASE EVENT DATE: 201912
